FAERS Safety Report 7235129-6 (Version None)
Quarter: 2011Q1

REPORT INFORMATION
  Report Type: 
  Country: None (occurrence: None)
  Receive Date: 20110120
  Receipt Date: 20110114
  Transmission Date: 20110831
  Serious: Yes (Other)
  Sender: FDA-Public Use
  Company Number: US-AMGEN-USASP2010011830

PATIENT

DRUGS (3)
  1. RECLAST [Concomitant]
     Indication: OSTEOPOROSIS
  2. LIPITOR [Concomitant]
     Indication: BLOOD CHOLESTEROL INCREASED
  3. ENBREL [Suspect]
     Indication: PSORIASIS
     Dates: start: 20101026

REACTIONS (5)
  - TOOTH DISORDER [None]
  - PSORIASIS [None]
  - RIB FRACTURE [None]
  - MUSCLE DISORDER [None]
  - LUNG DISORDER [None]
